FAERS Safety Report 17147339 (Version 2)
Quarter: 2019Q4

REPORT INFORMATION
  Report Type: Spontaneous
  Country: US (occurrence: US)
  Receive Date: 20191212
  Receipt Date: 20191217
  Transmission Date: 20200122
  Serious: No
  Sender: FDA-Public Use
  Company Number: US-HORIZON-KRY-1155-2019

PATIENT
  Age: 37 Year
  Sex: Male

DRUGS (3)
  1. KRYSTEXXA [Suspect]
     Active Substance: PEGLOTICASE
     Indication: GOUT
     Dosage: EVERY 2 WEEKS
     Route: 042
     Dates: start: 201911
  2. LOSARTAN. [Concomitant]
     Active Substance: LOSARTAN
  3. VITAMIN B [Concomitant]
     Active Substance: VITAMIN B

REACTIONS (5)
  - Hiccups [Recovered/Resolved]
  - Skin discolouration [Not Recovered/Not Resolved]
  - Chills [Recovered/Resolved]
  - Abdominal pain upper [Recovered/Resolved]
  - Gout [Not Recovered/Not Resolved]

NARRATIVE: CASE EVENT DATE: 201912
